FAERS Safety Report 14797668 (Version 6)
Quarter: 2019Q4

REPORT INFORMATION
  Report Type: Spontaneous
  Country: GB (occurrence: GB)
  Receive Date: 20180424
  Receipt Date: 20191107
  Transmission Date: 20200122
  Serious: Yes (Hospitalization)
  Sender: FDA-Public Use
  Company Number: GB-BIOGEN-2017BI00417093

PATIENT
  Sex: Female

DRUGS (4)
  1. FAMPYRA [Suspect]
     Active Substance: DALFAMPRIDINE
     Route: 050
  2. TYSABRI [Suspect]
     Active Substance: NATALIZUMAB
     Indication: PRODUCT USED FOR UNKNOWN INDICATION
     Route: 065
  3. FAMPYRA [Suspect]
     Active Substance: DALFAMPRIDINE
     Indication: MULTIPLE SCLEROSIS
     Route: 050
     Dates: start: 20130206
  4. FAMPYRA [Suspect]
     Active Substance: DALFAMPRIDINE
     Route: 050

REACTIONS (19)
  - Inappropriate schedule of product administration [Unknown]
  - Multiple sclerosis relapse [Unknown]
  - Contusion [Unknown]
  - Arthropathy [Unknown]
  - Movement disorder [Unknown]
  - Fall [Recovered/Resolved]
  - Memory impairment [Unknown]
  - Depression [Recovered/Resolved]
  - Underdose [Unknown]
  - Malaise [Unknown]
  - General physical health deterioration [Unknown]
  - Skin laceration [Unknown]
  - Initial insomnia [Unknown]
  - Fatigue [Unknown]
  - Nerve injury [Unknown]
  - Pain [Unknown]
  - Product dose omission [Unknown]
  - Urinary tract infection [Unknown]
  - Balance disorder [Unknown]
